FAERS Safety Report 16663106 (Version 1)
Quarter: 2019Q3

REPORT INFORMATION
  Report Type: Report from Study
  Country: US (occurrence: US)
  Receive Date: 20190802
  Receipt Date: 20190802
  Transmission Date: 20191004
  Serious: No
  Sender: FDA-Public Use
  Company Number: US-EXELIXIS-CABO-19019862

PATIENT
  Age: 62 Year
  Sex: Male
  Weight: 122.45 kg

DRUGS (19)
  1. AFINITOR [Concomitant]
     Active Substance: EVEROLIMUS
  2. HYDROXYZINE [Concomitant]
     Active Substance: HYDROXYZINE HYDROCHLORIDE
  3. LEVOTHYROXINE. [Concomitant]
     Active Substance: LEVOTHYROXINE
  4. XARELTO [Concomitant]
     Active Substance: RIVAROXABAN
  5. OXYCODONE [Concomitant]
     Active Substance: OXYCODONE
  6. PROCHLORPERAZINE. [Concomitant]
     Active Substance: PROCHLORPERAZINE
  7. DRONABINOL. [Concomitant]
     Active Substance: DRONABINOL
  8. TRELEGY ELLIPTA [Concomitant]
     Active Substance: FLUTICASONE FUROATE\UMECLIDINIUM BROMIDE\VILANTEROL TRIFENATATE
  9. CABOMETYX [Suspect]
     Active Substance: CABOZANTINIB S-MALATE
     Indication: LUNG NEOPLASM MALIGNANT
     Dosage: 40 MG, QD
     Route: 048
  10. CEFDINIR. [Concomitant]
     Active Substance: CEFDINIR
  11. LEVALBUTEROL. [Concomitant]
     Active Substance: LEVALBUTEROL
  12. BUPROPION. [Concomitant]
     Active Substance: BUPROPION
  13. CARVEDILOL. [Concomitant]
     Active Substance: CARVEDILOL
  14. THEO-24 [Concomitant]
     Active Substance: THEOPHYLLINE ANHYDROUS
  15. ATORVASTATIN [Concomitant]
     Active Substance: ATORVASTATIN
  16. FUROSEMIDE. [Concomitant]
     Active Substance: FUROSEMIDE
  17. LOMOTIL [Concomitant]
     Active Substance: ATROPINE SULFATE\DIPHENOXYLATE HYDROCHLORIDE
  18. PANTOPRAZOLE [Concomitant]
     Active Substance: PANTOPRAZOLE
  19. SOTALOL. [Concomitant]
     Active Substance: SOTALOL

REACTIONS (2)
  - Bronchitis [Unknown]
  - Off label use [Unknown]

NARRATIVE: CASE EVENT DATE: 201903
